FAERS Safety Report 23433753 (Version 1)
Quarter: 2024Q1

REPORT INFORMATION
  Report Type: Spontaneous
  Country: US (occurrence: None)
  Receive Date: 20240123
  Receipt Date: 20240123
  Transmission Date: 20240409
  Serious: No
  Sender: FDA-Public Use
  Company Number: None

PATIENT
  Sex: Male

DRUGS (2)
  1. SKYRIZI [Suspect]
     Active Substance: RISANKIZUMAB-RZAA
     Indication: Crohn^s disease
     Dosage: 360MG EVERY 8 WEEKS SUBQ
     Route: 058
     Dates: start: 202304
  2. METHOTREXATE [Concomitant]
     Active Substance: METHOTREXATE

REACTIONS (5)
  - Drug ineffective [None]
  - Abdominal discomfort [None]
  - Condition aggravated [None]
  - Crohn^s disease [None]
  - Abdominal pain [None]
